FAERS Safety Report 17562002 (Version 2)
Quarter: 2020Q3

REPORT INFORMATION
  Report Type: Report from Study
  Country: US (occurrence: US)
  Receive Date: 20200319
  Receipt Date: 20200709
  Transmission Date: 20201102
  Serious: Yes (Death, Other)
  Sender: FDA-Public Use
  Company Number: NVSC2020US075602

PATIENT
  Age: 67 Year
  Sex: Male

DRUGS (3)
  1. CYCLOPHOSPHAMIDE. [Concomitant]
     Active Substance: CYCLOPHOSPHAMIDE
     Indication: CHEMOTHERAPY
     Dosage: UNK
     Route: 065
  2. FLUDARABINE [Concomitant]
     Active Substance: FLUDARABINE PHOSPHATE
     Indication: CHEMOTHERAPY
     Dosage: UNK
     Route: 065
  3. KYMRIAH [Suspect]
     Active Substance: TISAGENLECLEUCEL
     Indication: DIFFUSE LARGE B-CELL LYMPHOMA
     Dosage: 1.6E8 CAR?POSITIVE VIABLE T CELLS ONCE/SINGLE
     Route: 041
     Dates: start: 2019

REACTIONS (14)
  - Platelet count decreased [Unknown]
  - Neutropenia [Unknown]
  - Thrombocytopenia [Unknown]
  - Parvovirus B19 infection [Unknown]
  - Cytokine release syndrome [Recovered/Resolved]
  - Cytopenia [Unknown]
  - BK virus infection [Fatal]
  - Haemoglobin decreased [Unknown]
  - Diffuse large B-cell lymphoma recurrent [Fatal]
  - Malignant neoplasm progression [Fatal]
  - Pyrexia [Unknown]
  - Haematocrit decreased [Unknown]
  - Out of specification test results [Unknown]
  - Hypogammaglobulinaemia [Unknown]
